FAERS Safety Report 4448648-2 (Version None)
Quarter: 2004Q3

REPORT INFORMATION
  Report Type: 
  Country: None (occurrence: None)
  Receive Date: 20040730
  Receipt Date: 20030924
  Transmission Date: 20050211
  Serious: Yes (Other)
  Sender: FDA-Public Use
  Company Number: 2003-09-3335

PATIENT
  Age: 30 Year
  Sex: Male
  Weight: 67 kg

DRUGS (5)
  1. INTRON A [Suspect]
     Indication: MALIGNANT MELANOMA
     Dosage: SEE IMAGE
     Route: 042
     Dates: start: 20030909, end: 20030930
  2. INTRON A [Suspect]
     Indication: MALIGNANT MELANOMA
     Dosage: SEE IMAGE
     Route: 042
     Dates: start: 20031001
  3. TYLENOL [Concomitant]
  4. PEPCID [Concomitant]
  5. LEXAPRO [Concomitant]

REACTIONS (2)
  - INFECTION [None]
  - MIGRAINE [None]
